FAERS Safety Report 18639144 (Version 1)
Quarter: 2020Q4

REPORT INFORMATION
  Report Type: Report from Study
  Country: IN (occurrence: IN)
  Receive Date: 20201219
  Receipt Date: 20201219
  Transmission Date: 20210114
  Serious: Yes (Death)
  Sender: FDA-Public Use
  Company Number: PHHY2019IN115979

PATIENT
  Age: 53 Year
  Sex: Male

DRUGS (1)
  1. VYMADA [Suspect]
     Active Substance: SACUBITRIL\VALSARTAN
     Indication: CARDIAC FAILURE CHRONIC
     Dosage: 0.5 DF (50MG), BID
     Route: 048
     Dates: start: 20190314

REACTIONS (3)
  - Prescribed underdose [Not Recovered/Not Resolved]
  - Cardiac arrest [Fatal]
  - Wrong technique in product usage process [Not Recovered/Not Resolved]
